FAERS Safety Report 6216831-1 (Version None)
Quarter: 2009Q2

REPORT INFORMATION
  Report Type: 
  Country: None (occurrence: None)
  Receive Date: 20090603
  Receipt Date: 20090603
  Transmission Date: 20091009
  Serious: Yes (Hospitalization)
  Sender: FDA-Public Use
  Company Number: None

PATIENT
  Sex: Female
  Weight: 74.8435 kg

DRUGS (1)
  1. DIGOXIN [Suspect]
     Indication: CARDIOMYOPATHY
     Dosage: 1 TABLET MWF 1/2 TAB OTHER DAYS DAILY
     Dates: start: 20090318, end: 20090428

REACTIONS (5)
  - DIZZINESS [None]
  - HEART RATE DECREASED [None]
  - NAUSEA [None]
  - PRODUCT DOSAGE FORM ISSUE [None]
  - PRODUCT QUALITY ISSUE [None]
